FAERS Safety Report 8365096-3 (Version None)
Quarter: 2012Q2

REPORT INFORMATION
  Report Type: 
  Country: None (occurrence: None)
  Receive Date: 20120516
  Receipt Date: 20120501
  Transmission Date: 20120825
  Serious: No
  Sender: FDA-Public Use
  Company Number: US-ASTRAZENECA-2012SE27643

PATIENT
  Age: 56 Year
  Sex: Male

DRUGS (4)
  1. NEXIUM [Suspect]
     Route: 048
  2. TOPROL-XL [Suspect]
     Route: 048
  3. CRESTOR [Suspect]
     Route: 048
  4. ZOCOR [Concomitant]

REACTIONS (4)
  - CROHN'S DISEASE [None]
  - MUSCLE SPASMS [None]
  - BLOOD CHOLESTEROL ABNORMAL [None]
  - SLEEP DISORDER [None]
